FAERS Safety Report 22114486 (Version 1)
Quarter: 2023Q1

REPORT INFORMATION
  Report Type: Report from Study
  Country: AU (occurrence: AU)
  Receive Date: 20230320
  Receipt Date: 20230320
  Transmission Date: 20230417
  Serious: Yes (Hospitalization)
  Sender: FDA-Public Use
  Company Number: AU-GLAXOSMITHKLINE-AU2023APC040610

PATIENT

DRUGS (3)
  1. MEPOLIZUMAB [Suspect]
     Active Substance: MEPOLIZUMAB
     Indication: Asthma
     Dosage: 100 MG, Z  (EVERY 28 DAYS)
     Route: 058
  2. PREDNISONE [Concomitant]
     Active Substance: PREDNISONE
     Indication: Product used for unknown indication
     Dosage: 50 MG
  3. PREDNISONE [Concomitant]
     Active Substance: PREDNISONE
     Dosage: 12.5 MG

REACTIONS (4)
  - Asthma [Recovering/Resolving]
  - Dyspnoea [Unknown]
  - Gait inability [Unknown]
  - Stress [Unknown]

NARRATIVE: CASE EVENT DATE: 20230303
